FAERS Safety Report 9745841 (Version 1)
Quarter: 2013Q4

REPORT INFORMATION
  Report Type: Spontaneous
  Country: FR (occurrence: FR)
  Receive Date: 20131211
  Receipt Date: 20131211
  Transmission Date: 20140711
  Serious: Yes (Hospitalization)
  Sender: FDA-Public Use
  Company Number: FR-ROCHE-1316583

PATIENT
  Age: 80 Year
  Sex: Male

DRUGS (4)
  1. MABTHERA [Suspect]
     Indication: AUTOIMMUNE HAEMOLYTIC ANAEMIA
     Route: 065
  2. METHYLPREDNISOLONE [Concomitant]
  3. PREDNISONE [Concomitant]
     Indication: HAEMOLYSIS
     Route: 065
  4. PREDNISONE [Concomitant]
     Route: 065

REACTIONS (1)
  - Lung disorder [Recovering/Resolving]
